FAERS Safety Report 7126965-5 (Version None)
Quarter: 2010Q4

REPORT INFORMATION
  Report Type: 
  Country: None (occurrence: None)
  Receive Date: 20101129
  Receipt Date: 20091203
  Transmission Date: 20110411
  Serious: No
  Sender: FDA-Public Use
  Company Number: US-PFIZER INC-2009307176

PATIENT
  Sex: Male

DRUGS (1)
  1. VIAGRA [Suspect]
     Indication: ERECTILE DYSFUNCTION
     Dosage: UNK
     Dates: start: 20090101, end: 20091101

REACTIONS (3)
  - MUSCULOSKELETAL DISCOMFORT [None]
  - PENIS DISORDER [None]
  - SKIN IRRITATION [None]
